FAERS Safety Report 6891168-6 (Version None)
Quarter: 2010Q3

REPORT INFORMATION
  Report Type: 
  Country: None (occurrence: None)
  Receive Date: 20100731
  Receipt Date: 20090616
  Transmission Date: 20110219
  Serious: No
  Sender: FDA-Public Use
  Company Number: US-PFIZER INC-2009185113

PATIENT
  Sex: Female
  Weight: 74.8 kg

DRUGS (4)
  1. LIPITOR [Suspect]
     Indication: BLOOD CHOLESTEROL ABNORMAL
     Dosage: 10 MG, 1X/DAY
  2. NEXIUM [Concomitant]
     Indication: GASTROOESOPHAGEAL REFLUX DISEASE
     Dosage: UNK
  3. HYZAAR [Concomitant]
     Indication: HYPERTENSION
     Dosage: UNK
  4. CELEBREX [Concomitant]
     Indication: OSTEOARTHRITIS
     Dosage: UNK

REACTIONS (5)
  - BLOOD CHOLESTEROL INCREASED [None]
  - BLOOD GLUCOSE INCREASED [None]
  - DYSGEUSIA [None]
  - HEPATIC ENZYME INCREASED [None]
  - WRONG TECHNIQUE IN DRUG USAGE PROCESS [None]
